FAERS Safety Report 5734012-2 (Version None)
Quarter: 2008Q2

REPORT INFORMATION
  Report Type: 
  Country: None (occurrence: None)
  Receive Date: 20080509
  Receipt Date: 20080502
  Transmission Date: 20081010
  Serious: Yes (Hospitalization, Other)
  Sender: FDA-Public Use
  Company Number: US-ELI_LILLY_AND_COMPANY-US200804003234

PATIENT
  Sex: Female

DRUGS (17)
  1. HUMALOG [Suspect]
     Indication: DIABETES MELLITUS
     Dosage: UNK, AS NEEDED
     Dates: start: 20080410
  2. VASOTEC [Concomitant]
     Dosage: 10 MG, 2/D
     Dates: start: 20080213
  3. SEPTRA [Concomitant]
     Dosage: UNK, DAILY (1/D)
     Dates: start: 20080213
  4. LIPITOR [Concomitant]
     Dosage: 20 MG, EACH EVENING
     Dates: start: 20080213
  5. LEVOXYL [Concomitant]
     Dosage: 0.15 MG, DAILY (1/D)
     Dates: start: 20080213
  6. LASIX [Concomitant]
     Dosage: 60 MG, DAILY (1/D)
     Dates: start: 20080213
  7. ZAROXOLYN [Concomitant]
     Dosage: 2.5 MG, DAILY (1/D)
     Dates: start: 20080326
  8. LANTUS [Concomitant]
     Dosage: 15 U, EACH EVENING
     Dates: start: 20080213
  9. HYDRALAZINE HCL [Concomitant]
     Dosage: 50 MG, 3/D
     Dates: start: 20080213
  10. GLUCOTROL [Concomitant]
     Dosage: 10 MG, DAILY (1/D)
     Dates: start: 20080213
  11. ULTRAM [Concomitant]
     Dosage: 50 MG, AS NEEDED
     Dates: start: 20080227
  12. COLACE [Concomitant]
     Dosage: 100 MG, 2/D
  13. METOPROLOL TARTRATE [Concomitant]
     Dosage: 50 MG, 2/D
  14. MILK OF MAGNESIA [Concomitant]
     Dosage: 30 ML, AS NEEDED
     Route: 048
  15. DULCOLAX [Concomitant]
     Dosage: UNK, AS NEEDED
     Route: 054
  16. ENEMAS [Concomitant]
     Dosage: UNK, AS NEEDED
  17. TYLENOL /USA/ [Concomitant]
     Dosage: 325 MG, AS NEEDED

REACTIONS (9)
  - ANAEMIA [None]
  - BLOOD GLUCOSE INCREASED [None]
  - DEHYDRATION [None]
  - GOUT [None]
  - HYPOTHYROIDISM [None]
  - MUSCLE SPASMS [None]
  - PAIN IN EXTREMITY [None]
  - PARAESTHESIA [None]
  - RENAL FAILURE CHRONIC [None]
